FAERS Safety Report 12830573 (Version 1)
Quarter: 2016Q4

REPORT INFORMATION
  Report Type: Spontaneous
  Country: BR (occurrence: BR)
  Receive Date: 20161007
  Receipt Date: 20161007
  Transmission Date: 20170207
  Serious: Yes (Hospitalization)
  Sender: FDA-Public Use
  Company Number: BR-MYLANLABS-2016M1041936

PATIENT

DRUGS (1)
  1. CLOZAPINE. [Suspect]
     Active Substance: CLOZAPINE
     Indication: DELUSIONAL DISORDER, UNSPECIFIED TYPE
     Dosage: 200 MG, QD

REACTIONS (5)
  - Pyrexia [Unknown]
  - Oesophageal achalasia [Recovering/Resolving]
  - Cough [Unknown]
  - Delusion [Unknown]
  - Weight increased [Unknown]
